FAERS Safety Report 4432576-2 (Version None)
Quarter: 2004Q3

REPORT INFORMATION
  Report Type: 
  Country: None (occurrence: None)
  Receive Date: 20040816
  Receipt Date: 20040727
  Transmission Date: 20050211
  Serious: Yes (Other)
  Sender: FDA-Public Use
  Company Number: 238353

PATIENT
  Age: 55 Year
  Sex: Male
  Weight: 80.7 kg

DRUGS (11)
  1. NOVOSEVEN [Suspect]
     Indication: FACTOR IX DEFICIENCY
     Dosage: 240 UG/KG, PRN, INTRAVENOUS
     Route: 042
     Dates: start: 20040703, end: 20040703
  2. NOVOSEVEN [Suspect]
     Indication: FACTOR IX DEFICIENCY
     Dosage: 240 UG/KG, PRN, INTRAVENOUS
     Route: 042
     Dates: start: 20040709, end: 20040709
  3. FELBATOL [Concomitant]
  4. GABITRIL [Concomitant]
  5. TOPAMAX [Concomitant]
  6. LASIX /SCH/ (FUROSEMIDE SODIUM, FUROSEMIDE) [Concomitant]
  7. RESTORIL [Concomitant]
  8. PRILOSEC [Concomitant]
  9. POTASSIUM (POTASSIUM) [Concomitant]
  10. OXYCODONE (OXYCODONE) [Concomitant]
  11. HYIDROMORPHONE (HYDROMORPHONE) [Concomitant]

REACTIONS (7)
  - CELLULITIS [None]
  - COAGULOPATHY [None]
  - DRUG HYPERSENSITIVITY [None]
  - INJECTION SITE HAEMORRHAGE [None]
  - INJECTION SITE SWELLING [None]
  - OEDEMA PERIPHERAL [None]
  - PLATELET DISORDER [None]
